FAERS Safety Report 4728166-4 (Version None)
Quarter: 2005Q3

REPORT INFORMATION
  Report Type: 
  Country: None (occurrence: None)
  Receive Date: 20050727
  Receipt Date: 20050606
  Transmission Date: 20060218
  Serious: Yes (Hospitalization, Other)
  Sender: FDA-Public Use
  Company Number: 2005037260

PATIENT
  Age: 78 Year
  Sex: Female

DRUGS (13)
  1. ATARAX [Suspect]
     Indication: ILL-DEFINED DISORDER
     Dosage: 25 MG ( 1 IN 1 D), ORAL
     Route: 048
     Dates: start: 20040810
  2. EQUANIL [Suspect]
     Indication: ILL-DEFINED DISORDER
     Dosage: 400 MG ( 1 IN 1 D), ORAL
     Route: 048
     Dates: start: 20040803, end: 20040820
  3. KETOPROFEN [Suspect]
     Indication: FEMUR FRACTURE
     Dosage: 50 MG (1 IN 1 D), ORAL
     Route: 048
     Dates: start: 20040808, end: 20040817
  4. AUGMENTIN '125' [Suspect]
     Indication: PYREXIA
     Dosage: 3 GRAM (1 IN 1 D), ORAL
     Route: 048
     Dates: start: 20040716, end: 20040725
  5. ACETAMINOPHEN [Suspect]
     Indication: FEMUR FRACTURE
     Dosage: 3 GRAM (1 IN 1 D), ORAL
     Route: 048
     Dates: start: 20040807
  6. EUPANTOL (PANTOPRAZOLE) [Suspect]
     Indication: MELAENA
     Dosage: 40 MG (1 IN 1 D), ORAL
     Route: 048
     Dates: start: 20040714
  7. VITAMIN B1 (THIAMIDE HYDROCHLORIDE) [Concomitant]
  8. VITAMIN B6 (VITAMIN B6) [Concomitant]
  9. FOLIC ACID [Concomitant]
  10. TRANXENE [Concomitant]
  11. ANEXATE (FLUMAZENIL) [Concomitant]
  12. TERCIAN (CYAMEMAZINE) [Concomitant]
  13. LOVENOX [Concomitant]

REACTIONS (6)
  - BLOOD ALKALINE PHOSPHATASE INCREASED [None]
  - FALL [None]
  - FEMUR FRACTURE [None]
  - GAMMA-GLUTAMYLTRANSFERASE INCREASED [None]
  - LUNG DISORDER [None]
  - PYREXIA [None]
